FAERS Safety Report 15227361 (Version 2)
Quarter: 2019Q2

REPORT INFORMATION
  Report Type: Spontaneous
  Country: US (occurrence: US)
  Receive Date: 20180801
  Receipt Date: 20190409
  Transmission Date: 20190711
  Serious: Yes (Life-Threatening, Hospitalization)
  Sender: FDA-Public Use
  Company Number: US-MYLANLABS-2018M1057032

PATIENT
  Age: 85 Year
  Sex: Female

DRUGS (1)
  1. ALLOPURINOL. [Suspect]
     Active Substance: ALLOPURINOL
     Indication: HYPERURICAEMIA
     Dosage: 300 MILLIGRAM
     Route: 048

REACTIONS (5)
  - Erythema multiforme [Recovered/Resolved]
  - Stevens-Johnson syndrome [Recovering/Resolving]
  - Anuria [Recovered/Resolved]
  - Toxic epidermal necrolysis [Recovering/Resolving]
  - Acidosis [Unknown]
